FAERS Safety Report 15743447 (Version 1)
Quarter: 2018Q4

REPORT INFORMATION
  Report Type: Spontaneous
  Country: JP (occurrence: JP)
  Receive Date: 20181220
  Receipt Date: 20181220
  Transmission Date: 20190205
  Serious: Yes (Death)
  Sender: FDA-Public Use
  Company Number: JP-MALLINCKRODT-T201805538

PATIENT
  Age: 45 Year
  Sex: Female
  Weight: 44 kg

DRUGS (7)
  1. ABSTRAL [Concomitant]
     Active Substance: FENTANYL CITRATE
     Indication: ANALGESIC THERAPY
     Dosage: 100 MCG, PRN (AS NEEDED)
     Route: 060
     Dates: start: 20140331
  2. XYLOCAINE [Concomitant]
     Active Substance: LIDOCAINE HYDROCHLORIDE
     Indication: ANALGESIC THERAPY
     Dosage: 1000 MG, UNK
     Route: 051
     Dates: start: 20140326, end: 20140401
  3. OMEPRAL [Concomitant]
     Active Substance: OMEPRAZOLE
     Indication: PRODUCT USED FOR UNKNOWN INDICATION
     Dosage: 20 MG, UNK
     Route: 051
     Dates: start: 20140327, end: 20140403
  4. CALONAL [Concomitant]
     Active Substance: ACETAMINOPHEN
     Indication: ANALGESIC THERAPY
     Dosage: 2400 MG, UNK
     Route: 048
     Dates: start: 20140404, end: 20140507
  5. DECADRON [Concomitant]
     Active Substance: DEXAMETHASONE
     Indication: PANCREATIC CARCINOMA
     Dosage: 2 MG, UNK
     Route: 048
     Dates: start: 20140417, end: 20140507
  6. METHADONE [Suspect]
     Active Substance: METHADONE HYDROCHLORIDE
     Indication: CANCER PAIN
     Dosage: 15 MG, UNK (ONE TIME DOSE, 5MG)
     Route: 048
     Dates: start: 20140331, end: 20140507
  7. TAKEPRON [Concomitant]
     Active Substance: LANSOPRAZOLE
     Indication: PRODUCT USED FOR UNKNOWN INDICATION
     Dosage: 30 MG, UNK
     Route: 048
     Dates: start: 20140404, end: 20140507

REACTIONS (2)
  - Disease progression [Fatal]
  - Pancreatic carcinoma [Fatal]
